FAERS Safety Report 6021422-1 (Version None)
Quarter: 2008Q4

REPORT INFORMATION
  Report Type: 
  Country: None (occurrence: None)
  Receive Date: 20081229
  Receipt Date: 20081222
  Transmission Date: 20090506
  Serious: Yes (Other)
  Sender: FDA-Public Use
  Company Number: D0059243A

PATIENT
  Age: 28 Year
  Sex: Female

DRUGS (3)
  1. TWINRIX ADULT [Suspect]
     Indication: PROPHYLAXIS
     Dosage: 1ML SINGLE DOSE
     Route: 065
     Dates: start: 20081001, end: 20081001
  2. LAMICTAL [Suspect]
     Indication: EPILEPSY
     Dosage: 100MG TWICE PER DAY
     Route: 048
  3. VITAMIN B-12 [Concomitant]
     Route: 065

REACTIONS (6)
  - DRUG INTERACTION [None]
  - GRAND MAL CONVULSION [None]
  - HEADACHE [None]
  - OEDEMA PERIPHERAL [None]
  - PYREXIA [None]
  - UNDERDOSE [None]
